FAERS Safety Report 9471694 (Version 1)
Quarter: 2013Q3

REPORT INFORMATION
  Report Type: Spontaneous
  Country: CA (occurrence: None)
  Receive Date: 20130819
  Receipt Date: 20130819
  Transmission Date: 20140515
  Serious: Yes (Hospitalization)
  Sender: FDA-Public Use
  Company Number: CA-012633

PATIENT
  Age: 64 Year
  Sex: Male
  Weight: 73.4 kg

DRUGS (9)
  1. FIRMAGON [Suspect]
     Indication: PROSTATE CANCER
     Route: 058
  2. NAPROXEN [Concomitant]
  3. MORPHINE [Concomitant]
  4. DEXLANSOPRAZOLE [Concomitant]
  5. ZOLPIDEM [Concomitant]
  6. DENOSUMAB [Concomitant]
  7. CALCIUM [Concomitant]
  8. NATURAL VITAMIN D [Concomitant]
  9. LAXATIVE [Concomitant]

REACTIONS (1)
  - Hospitalisation [None]
